FAERS Safety Report 7513920-6 (Version None)
Quarter: 2011Q2

REPORT INFORMATION
  Report Type: 
  Country: None (occurrence: None)
  Receive Date: 20110531
  Receipt Date: 20110525
  Transmission Date: 20111010
  Serious: Yes (Hospitalization)
  Sender: FDA-Public Use
  Company Number: BR-ABBOTT-11P-020-0727002-00

PATIENT

DRUGS (4)
  1. HUMIRA [Suspect]
     Indication: RHEUMATOID ARTHRITIS
     Route: 058
     Dates: start: 20070907, end: 20110525
  2. CALCIUM CARBONATE [Concomitant]
     Indication: BONE DISORDER
     Route: 048
  3. UNKNOWN MAGISTRAL FORMULA [Concomitant]
     Indication: MUSCULOSKELETAL PAIN
     Route: 048
  4. METHOTREXATE [Concomitant]
     Indication: MUSCULOSKELETAL PAIN
     Route: 048

REACTIONS (2)
  - ANAEMIA [None]
  - UTERINE HAEMORRHAGE [None]
